FAERS Safety Report 17176916 (Version 9)
Quarter: 2022Q2

REPORT INFORMATION
  Report Type: Report from Study
  Country: None (occurrence: US)
  Receive Date: 20191219
  Receipt Date: 20220411
  Transmission Date: 20220720
  Serious: Yes (Other)
  Sender: FDA-Public Use
  Company Number: US-AKCEA THERAPEUTICS-2019IS001657

PATIENT
  Age: 77 Year
  Sex: Female
  Weight: 69.091 kg

DRUGS (17)
  1. TEGSEDI [Suspect]
     Active Substance: INOTERSEN SODIUM
     Indication: Familial amyloidosis
     Route: 058
     Dates: start: 20190315
  2. DEVICE [Suspect]
     Active Substance: DEVICE
  3. DOXYCYCLINE [Concomitant]
     Active Substance: DOXYCYCLINE
     Route: 048
  4. ROSUVASTATIN [Concomitant]
     Active Substance: ROSUVASTATIN
     Route: 048
  5. OMEPRAZOLE [Concomitant]
     Active Substance: OMEPRAZOLE
     Route: 048
  6. ASPIRIN [Concomitant]
     Active Substance: ASPIRIN
     Route: 048
  7. VITAMIN D3 [Concomitant]
     Active Substance: CHOLECALCIFEROL
     Route: 048
  8. METOPROLOL [Concomitant]
     Active Substance: METOPROLOL
     Route: 048
  9. LASIX [Concomitant]
     Active Substance: FUROSEMIDE
     Route: 048
  10. MAGNESIUM [Concomitant]
     Active Substance: MAGNESIUM
     Route: 048
  11. LISINOPRIL [Concomitant]
     Active Substance: LISINOPRIL
     Route: 048
  12. CALCIUM MAGNESIUM ZINC PLUS VITAMIN D [Concomitant]
     Route: 048
  13. RETINOL [Concomitant]
     Active Substance: RETINOL
     Route: 048
  14. BROMFENAC [Concomitant]
     Active Substance: BROMFENAC SODIUM
  15. TEGSEDI [Suspect]
     Active Substance: INOTERSEN SODIUM
     Route: 058
     Dates: start: 20190315, end: 20191008
  16. TEGSEDI [Suspect]
     Active Substance: INOTERSEN SODIUM
     Route: 058
     Dates: start: 201910, end: 20191018
  17. TEGSEDI [Suspect]
     Active Substance: INOTERSEN SODIUM
     Route: 058

REACTIONS (8)
  - Thrombocytopenia [Recovered/Resolved]
  - White blood cell count decreased [Not Recovered/Not Resolved]
  - Urine protein/creatinine ratio abnormal [Unknown]
  - Proteinuria [Not Recovered/Not Resolved]
  - Drug ineffective [Unknown]
  - Oedema peripheral [Unknown]
  - Fatigue [Unknown]
  - Glomerulonephritis [Unknown]

NARRATIVE: CASE EVENT DATE: 20190805
